FAERS Safety Report 24352244 (Version 1)
Quarter: 2024Q3

REPORT INFORMATION
  Report Type: Report from Study
  Country: EG (occurrence: EG)
  Receive Date: 20240923
  Receipt Date: 20240923
  Transmission Date: 20241017
  Serious: No
  Sender: ROCHE
  Company Number: EG-ROCHE-3096951

PATIENT
  Age: 62 Year
  Sex: Female

DRUGS (18)
  1. TRASTUZUMAB [Suspect]
     Active Substance: TRASTUZUMAB
     Indication: HER2 positive breast cancer
     Dosage: CYCLE 6
     Route: 041
     Dates: start: 20181114, end: 20190227
  2. TRASTUZUMAB [Suspect]
     Active Substance: TRASTUZUMAB
     Indication: Breast cancer metastatic
     Dosage: CYLLE 6
     Route: 042
     Dates: start: 20220115
  3. GEMCITABINE [Suspect]
     Active Substance: GEMCITABINE
     Indication: HER2 positive breast cancer
     Dosage: D1, D8/3 WEEKS, CYCLE 6? FREQUENCY TEXT:OTHER
     Route: 042
     Dates: start: 20220115
  4. GEMCITABINE [Suspect]
     Active Substance: GEMCITABINE
     Indication: Breast cancer metastatic
  5. DOCETAXEL [Suspect]
     Active Substance: DOCETAXEL\DOCETAXEL ANHYDROUS
     Indication: HER2 positive breast cancer
     Dosage: CYCLE 6
     Route: 042
     Dates: start: 20181114, end: 20190227
  6. DOCETAXEL [Suspect]
     Active Substance: DOCETAXEL\DOCETAXEL ANHYDROUS
     Indication: Breast cancer metastatic
  7. CISPLATIN [Suspect]
     Active Substance: CISPLATIN
     Indication: HER2 positive breast cancer
     Dosage: CYCLE 6, D1-3/3WEEKS? FREQUENCY TEXT:OTHER
     Route: 042
     Dates: start: 20220115
  8. CISPLATIN [Suspect]
     Active Substance: CISPLATIN
     Indication: Breast cancer metastatic
  9. CARBOPLATIN [Suspect]
     Active Substance: CARBOPLATIN
     Indication: HER2 positive breast cancer
     Dosage: CYCLE 6
     Route: 042
     Dates: start: 20181114, end: 20190227
  10. LETROZOLE [Suspect]
     Active Substance: LETROZOLE
     Indication: HER2 positive breast cancer
     Route: 048
     Dates: start: 20190603, end: 20220115
  11. LETROZOLE [Suspect]
     Active Substance: LETROZOLE
     Indication: Breast cancer metastatic
  12. PIPERACILLIN AND TAZOBACTAM [Concomitant]
     Active Substance: PIPERACILLIN SODIUM\TAZOBACTAM SODIUM
     Indication: Febrile neutropenia
     Route: 042
     Dates: start: 20190102, end: 20190107
  13. FERROUS GLUCONATE [Concomitant]
     Active Substance: FERROUS GLUCONATE
     Indication: Anaemia
     Route: 048
     Dates: start: 20190206, end: 20190603
  14. MAGIC WASH [ALUMINIUM HYDROXIDE;DIPHENHYDRAMINE;MAGNESIUM HYDROXIDE;SI [Concomitant]
     Indication: Mucosal inflammation
     Dosage: 1 SPRAY
     Route: 048
     Dates: start: 20181205, end: 20181226
  15. ASPIRIN [Concomitant]
     Active Substance: ASPIRIN
     Indication: Mucosal inflammation
     Dosage: 1 SPRAY
     Route: 048
     Dates: start: 20181205, end: 20181226
  16. SUPPORTAN [Concomitant]
     Indication: Decreased appetite
     Dosage: DOSE UNIT: 1 OTHER, BOTTLE
     Route: 048
     Dates: start: 20190206, end: 20190603
  17. ALANYL GLUTAMINE [Concomitant]
     Active Substance: ALANYL GLUTAMINE
     Indication: Decreased appetite
     Dosage: DOSE UNIT: 1 OTHER, BOTTLE
     Route: 042
     Dates: start: 20190206, end: 20190210
  18. EPREX [Concomitant]
     Active Substance: ERYTHROPOIETIN
     Indication: Anaemia
     Dosage: SC/1  WEEK FOR 4 WEEKS? FREQUENCY TEXT:OTHER
     Route: 058
     Dates: start: 20220228, end: 20220228

REACTIONS (1)
  - Arthralgia [Recovered/Resolved]

NARRATIVE: CASE EVENT DATE: 20220416
